FAERS Safety Report 25784287 (Version 1)
Quarter: 2025Q3

REPORT INFORMATION
  Report Type: Spontaneous
  Country: US (occurrence: US)
  Receive Date: 20250910
  Receipt Date: 20250910
  Transmission Date: 20251021
  Serious: No
  Sender: RECKITT BENCKISER
  Company Number: US-PROD-AS2-212756134-20-24-USA-RB-0012102

PATIENT
  Age: 80 Year
  Sex: Male

DRUGS (1)
  1. MUCINEX MAXIMUM STRENGTH [Suspect]
     Active Substance: GUAIFENESIN
     Indication: Nasopharyngitis
     Route: 048
     Dates: start: 20241002

REACTIONS (1)
  - Accidental overdose [Unknown]
